FAERS Safety Report 6677233-7 (Version None)
Quarter: 2010Q2

REPORT INFORMATION
  Report Type: 
  Country: None (occurrence: None)
  Receive Date: 20100412
  Receipt Date: 20100402
  Transmission Date: 20101027
  Serious: Yes (Hospitalization)
  Sender: FDA-Public Use
  Company Number: JP-BRISTOL-MYERS SQUIBB COMPANY-15055866

PATIENT
  Age: 71 Year
  Sex: Female
  Weight: 60 kg

DRUGS (5)
  1. ERBITUX [Suspect]
     Indication: COLON CANCER
     Dosage: 13APR09:500MG 20APR-1JUN09:300MG(42D) 15JUN-10AUG09:250MG (56D) RECENT:10AUG09 (15TH)
     Route: 042
     Dates: start: 20090413, end: 20090413
  2. TOPOTECAN [Concomitant]
     Indication: COLON CANCER
     Dosage: RECENT INF (7TH):10AUG09 :200 MG
     Route: 042
     Dates: start: 20090413
  3. RESTAMIN [Concomitant]
     Indication: PREMEDICATION
     Dosage: 5DF-5 TABS
     Route: 048
     Dates: start: 20090413
  4. DEXART [Concomitant]
     Indication: PREMEDICATION
     Route: 042
     Dates: start: 20090413
  5. KYTRIL [Concomitant]
     Indication: ANTIEMETIC SUPPORTIVE CARE
     Route: 042
     Dates: start: 20090413

REACTIONS (1)
  - DUODENAL ULCER PERFORATION [None]
